FAERS Safety Report 9416852 (Version 7)
Quarter: 2014Q1

REPORT INFORMATION
  Report Type: Report from Study
  Country: DE (occurrence: DE)
  Receive Date: 20130724
  Receipt Date: 20140222
  Transmission Date: 20141002
  Serious: Yes (Death, Hospitalization, Other)
  Sender: FDA-Public Use
  Company Number: DE-ROCHE-1251129

PATIENT
  Age: 48 Year
  Sex: Female
  Weight: 93 kg

DRUGS (5)
  1. TOCILIZUMAB [Suspect]
     Indication: RHEUMATOID ARTHRITIS
     Dosage: LAST DOSE PRIOR TO SAE: 16/JUL/2013
     Route: 042
     Dates: start: 20130716
  2. SULFASALAZINE [Suspect]
     Indication: RHEUMATOID ARTHRITIS
     Dosage: LAST DOSE PRIOR TO SAE: 18/JUL/2013
     Route: 048
     Dates: start: 20120220
  3. PREDNISOLONE [Suspect]
     Indication: RHEUMATOID ARTHRITIS
     Dosage: LAST DOSE PRIOR TO SAE: 18/JUL/2013
     Route: 048
     Dates: start: 2011
  4. NICOTINE [Concomitant]
  5. AMLODIPIN [Concomitant]
     Indication: HYPERTENSION
     Route: 065
     Dates: start: 201206

REACTIONS (7)
  - Aortic dissection [Fatal]
  - Acute respiratory failure [Fatal]
  - Diffuse alveolar damage [Fatal]
  - Bronchopneumonia [Fatal]
  - Chest pain [Recovered/Resolved]
  - Cardiogenic shock [Recovered/Resolved]
  - Discomfort [Unknown]
